FAERS Safety Report 25838727 (Version 2)
Quarter: 2025Q4

REPORT INFORMATION
  Report Type: Report from Study
  Country: CO (occurrence: CO)
  Receive Date: 20250924
  Receipt Date: 20251013
  Transmission Date: 20260118
  Serious: Yes (Hospitalization)
  Sender: ABBVIE
  Company Number: CO-ABBVIE-6467305

PATIENT
  Age: 82 Year
  Sex: Female
  Weight: 60 kg

DRUGS (2)
  1. RINVOQ [Suspect]
     Active Substance: UPADACITINIB
     Indication: Rheumatoid arthritis
     Dosage: FORM STRENGTH: BOTTLE 15 MG
     Route: 048
     Dates: start: 20240723, end: 20250901
  2. DEFLAZACORT [Concomitant]
     Active Substance: DEFLAZACORT
     Indication: Rheumatoid arthritis
     Route: 048

REACTIONS (6)
  - Cardiac arrest [Recovering/Resolving]
  - Discomfort [Unknown]
  - Drug ineffective [Unknown]
  - Neck pain [Not Recovered/Not Resolved]
  - Pain in extremity [Not Recovered/Not Resolved]
  - Coronary artery disease [Recovering/Resolving]

NARRATIVE: CASE EVENT DATE: 20250101
